FAERS Safety Report 18495046 (Version 1)
Quarter: 2020Q4

REPORT INFORMATION
  Report Type: Spontaneous
  Country: US (occurrence: US)
  Receive Date: 20201111
  Receipt Date: 20201111
  Transmission Date: 20210114
  Serious: Yes (Other)
  Sender: FDA-Public Use
  Company Number: None

PATIENT
  Age: 36 Year
  Sex: Female
  Weight: 56.1 kg

DRUGS (1)
  1. CHLORHEXIDINE 0.12% [Suspect]
     Active Substance: CHLORHEXIDINE GLUCONATE
     Indication: ANTIBIOTIC PROPHYLAXIS
     Route: 002
     Dates: start: 20201021, end: 20201028

REACTIONS (3)
  - Product contamination microbial [None]
  - Recalled product administered [None]
  - Product quality issue [None]

NARRATIVE: CASE EVENT DATE: 20201028
